FAERS Safety Report 8248965-4 (Version None)
Quarter: 2012Q2

REPORT INFORMATION
  Report Type: 
  Country: None (occurrence: None)
  Receive Date: 20120402
  Receipt Date: 20120323
  Transmission Date: 20120825
  Serious: Yes (Hospitalization)
  Sender: FDA-Public Use
  Company Number: US-BIOGENIDEC-2011BI047849

PATIENT
  Age: 66 Year
  Sex: Female

DRUGS (1)
  1. TYSABRI [Suspect]
     Indication: MULTIPLE SCLEROSIS
     Route: 042
     Dates: start: 20080523, end: 20111025

REACTIONS (5)
  - SPINAL COLUMN STENOSIS [None]
  - MONOPARESIS [None]
  - SPINAL DEFORMITY [None]
  - MULTIPLE SCLEROSIS RELAPSE [None]
  - DRUG SPECIFIC ANTIBODY PRESENT [None]
